FAERS Safety Report 14759809 (Version 2)
Quarter: 2018Q2

REPORT INFORMATION
  Report Type: Report from Study
  Country: US (occurrence: US)
  Receive Date: 20180413
  Receipt Date: 20180611
  Transmission Date: 20180711
  Serious: Yes (Other)
  Sender: FDA-Public Use
  Company Number: US-VIFOR (INTERNATIONAL) INC.-VIT-2017-05893

PATIENT
  Age: 73 Year
  Sex: Male
  Weight: 70.37 kg

DRUGS (16)
  1. SUPREP BOWEL PREP [Concomitant]
     Active Substance: MAGNESIUM SULFATE\POTASSIUM SULFATE\SODIUM SULFATE
  2. MIRALAX [Concomitant]
     Active Substance: POLYETHYLENE GLYCOL 3350
     Indication: CONSTIPATION
     Dates: start: 20170418
  3. VELTASSA [Suspect]
     Active Substance: PATIROMER
     Route: 048
     Dates: start: 20170503
  4. FLUOROURACIL. [Concomitant]
     Active Substance: FLUOROURACIL
  5. SODIUM APOLATE [Concomitant]
  6. TAMSULOSIN [Concomitant]
     Active Substance: TAMSULOSIN
  7. ALENDRONATE SODIUM. [Concomitant]
     Active Substance: ALENDRONATE SODIUM
     Dosage: ONCE WEEKLY
  8. MAGNESIUM OXIDE. [Concomitant]
     Active Substance: MAGNESIUM OXIDE
     Dosage: EVERY MORNING
  9. ATENOLOL. [Concomitant]
     Active Substance: ATENOLOL
     Dosage: AT 8 PM
  10. NEORAL [Concomitant]
     Active Substance: CYCLOSPORINE
  11. MYCOPHENOLATE MOFETIL. [Concomitant]
     Active Substance: MYCOPHENOLATE MOFETIL
     Indication: IMMUNOSUPPRESSION
  12. COLECALCIFEROL [Concomitant]
     Active Substance: CHOLECALCIFEROL
     Dosage: TWICE DAILY
  13. VELTASSA [Suspect]
     Active Substance: PATIROMER
     Indication: HYPERKALAEMIA
     Route: 048
     Dates: start: 20170418
  14. VELTASSA [Suspect]
     Active Substance: PATIROMER
     Route: 048
     Dates: start: 20170722
  15. VELTASSA [Suspect]
     Active Substance: PATIROMER
     Dosage: ALTERNATE 8.4 G AND 16.8 G EVERY OTHER DAY
     Route: 048
     Dates: start: 20170914
  16. ATORVASTATIN [Concomitant]
     Active Substance: ATORVASTATIN

REACTIONS (10)
  - Dyschezia [Unknown]
  - Drug dose omission [Unknown]
  - Urinary retention [Not Recovered/Not Resolved]
  - Prostatic disorder [Recovered/Resolved]
  - Inappropriate schedule of drug administration [Unknown]
  - Faeces hard [Unknown]
  - Drug administration error [Recovered/Resolved]
  - Diarrhoea [Recovered/Resolved]
  - Constipation [Not Recovered/Not Resolved]
  - Flatulence [Not Recovered/Not Resolved]

NARRATIVE: CASE EVENT DATE: 2017
